FAERS Safety Report 18855377 (Version 1)
Quarter: 2021Q1

REPORT INFORMATION
  Report Type: Report from Study
  Country: JP (occurrence: JP)
  Receive Date: 20210206
  Receipt Date: 20210206
  Transmission Date: 20210420
  Serious: Yes (Other)
  Sender: FDA-Public Use
  Company Number: JP-SUN PHARMACEUTICAL INDUSTRIES LTD-2021R1-278634

PATIENT
  Sex: Female

DRUGS (1)
  1. CARVEDILOL. [Suspect]
     Active Substance: CARVEDILOL
     Indication: ARRHYTHMIA PROPHYLAXIS
     Dosage: UNK
     Route: 065

REACTIONS (4)
  - Foetal growth restriction [Unknown]
  - Cardiac failure chronic [Unknown]
  - Maternal exposure during pregnancy [Unknown]
  - Ventricular tachycardia [Unknown]
